FAERS Safety Report 10339527 (Version 1)
Quarter: 2014Q3

REPORT INFORMATION
  Report Type: Spontaneous
  Country: GB (occurrence: GB)
  Receive Date: 20140724
  Receipt Date: 20140724
  Transmission Date: 20150326
  Serious: Yes (Other)
  Sender: FDA-Public Use
  Company Number: GB-ACTAVIS-2014-15661

PATIENT
  Age: 21 Year
  Sex: Male
  Weight: 76 kg

DRUGS (2)
  1. FINASTERIDE (UNKNOWN) [Suspect]
     Active Substance: FINASTERIDE
     Indication: ANDROGENETIC ALOPECIA
     Dosage: 0.3 MG, DAILY
     Route: 048
     Dates: start: 20100101, end: 20100301
  2. FINASTERIDE (UNKNOWN) [Suspect]
     Active Substance: FINASTERIDE
     Indication: OFF LABEL USE

REACTIONS (4)
  - Fat redistribution [Not Recovered/Not Resolved]
  - Off label use [Unknown]
  - Collagen disorder [Not Recovered/Not Resolved]
  - Premature ageing [Not Recovered/Not Resolved]
